FAERS Safety Report 6242131-X (Version None)
Quarter: 2009Q2

REPORT INFORMATION
  Report Type: 
  Country: None (occurrence: None)
  Receive Date: 20090622
  Receipt Date: 20090622
  Transmission Date: 20091009
  Serious: No
  Sender: FDA-Public Use
  Company Number: None

PATIENT
  Age: 53 Year
  Sex: Male
  Weight: 94.3482 kg

DRUGS (1)
  1. OXYCONTIN [Suspect]
     Indication: HEADACHE
     Dosage: X1 PO
     Route: 048

REACTIONS (1)
  - HALLUCINATION [None]
